FAERS Safety Report 17295287 (Version 1)
Quarter: 2020Q1

REPORT INFORMATION
  Report Type: Spontaneous
  Country: US (occurrence: US)
  Receive Date: 20200121
  Receipt Date: 20200121
  Transmission Date: 20200409
  Serious: No
  Sender: FDA-Public Use
  Company Number: US-PFIZER INC-2020026272

PATIENT
  Age: 69 Year
  Sex: Female

DRUGS (1)
  1. IBRANCE [Suspect]
     Active Substance: PALBOCICLIB
     Dosage: 125 MG, UNK

REACTIONS (6)
  - Stress [Unknown]
  - Peripheral swelling [Unknown]
  - Aphthous ulcer [Unknown]
  - Fluid retention [Unknown]
  - Herpes zoster [Unknown]
  - Malaise [Unknown]

NARRATIVE: CASE EVENT DATE: 201912
